FAERS Safety Report 6460076-7 (Version None)
Quarter: 2009Q4

REPORT INFORMATION
  Report Type: 
  Country: None (occurrence: None)
  Receive Date: 20091129
  Receipt Date: 20091121
  Transmission Date: 20100525
  Serious: Yes (Other)
  Sender: FDA-Public Use
  Company Number: PHHO2009US14475

PATIENT
  Sex: Female
  Weight: 30.1 kg

DRUGS (1)
  1. CGP 57148B T35717+ [Suspect]
     Indication: ACUTE LYMPHOCYTIC LEUKAEMIA
     Dosage: 240 MG/M2, QD
     Route: 048
     Dates: start: 20050819, end: 20060426

REACTIONS (3)
  - BLISTER [None]
  - DERMATITIS BULLOUS [None]
  - PALMAR-PLANTAR ERYTHRODYSAESTHESIA SYNDROME [None]
